FAERS Safety Report 23901902 (Version 1)
Quarter: 2024Q2

REPORT INFORMATION
  Report Type: Spontaneous
  Country: US (occurrence: None)
  Receive Date: 20240526
  Receipt Date: 20240526
  Transmission Date: 20240716
  Serious: No
  Sender: FDA-Public Use
  Company Number: US-ROCHE-3453262

PATIENT
  Sex: Male

DRUGS (2)
  1. OCREVUS [Suspect]
     Active Substance: OCRELIZUMAB
     Indication: Product used for unknown indication
     Dosage: FIRST INFUSION ON SEPT 29
     Route: 065
  2. AVONEX [Concomitant]
     Active Substance: INTERFERON BETA-1A

REACTIONS (1)
  - Pain in extremity [Unknown]
